FAERS Safety Report 25015527 (Version 1)
Quarter: 2025Q1

REPORT INFORMATION
  Report Type: Spontaneous
  Country: IN (occurrence: None)
  Receive Date: 20250227
  Receipt Date: 20250227
  Transmission Date: 20250409
  Serious: Yes (Other)
  Sender: CMP PHARMA
  Company Number: IN-CMPPHARMA-000480

PATIENT
  Age: 30 Year
  Sex: Female

DRUGS (1)
  1. TRIANEX [Suspect]
     Active Substance: TRIAMCINOLONE ACETONIDE
     Indication: Uveitis

REACTIONS (3)
  - Conjunctival cyst [Unknown]
  - Off label use [Unknown]
  - Product administered at inappropriate site [Unknown]
